FAERS Safety Report 21981569 (Version 1)
Quarter: 2023Q1

REPORT INFORMATION
  Report Type: Spontaneous
  Country: US (occurrence: US)
  Receive Date: 20230212
  Receipt Date: 20230212
  Transmission Date: 20230418
  Serious: No
  Sender: FDA-Public Use
  Company Number: US-SANOFI-01483772

PATIENT
  Sex: Male

DRUGS (1)
  1. INSULIN LISPRO [Suspect]
     Active Substance: INSULIN LISPRO

REACTIONS (2)
  - Blood glucose decreased [Unknown]
  - Blood glucose increased [Unknown]
